FAERS Safety Report 7487706-5 (Version None)
Quarter: 2011Q2

REPORT INFORMATION
  Report Type: 
  Country: None (occurrence: None)
  Receive Date: 20110511
  Receipt Date: 20110427
  Transmission Date: 20111010
  Serious: Yes (Hospitalization)
  Sender: FDA-Public Use
  Company Number: 2011CP000061

PATIENT
  Age: 50 Year
  Sex: Female

DRUGS (5)
  1. PHENOBARBITAL TAB [Suspect]
     Indication: EPILEPSY
  2. ACETAMINOPHEN [Suspect]
     Indication: STAPHYLOCOCCAL SEPSIS
     Dosage: 4 GM;1/1DAY; IV
     Route: 042
  3. PHENYTOIN [Suspect]
     Indication: EPILEPSY
  4. CARBAMAZEPINE [Suspect]
     Indication: EPILEPSY
  5. FLUCLOXCILLIN SODIUM (FLUCLOXACILLIN SODIUM) [Suspect]
     Indication: STAPHYLOCOCCAL SEPSIS
     Dosage: 8 GM; IV
     Route: 042

REACTIONS (8)
  - DEPRESSED LEVEL OF CONSCIOUSNESS [None]
  - HYPOTENSION [None]
  - DRUG INTERACTION [None]
  - TACHYPNOEA [None]
  - URINE KETONE BODY PRESENT [None]
  - ANION GAP [None]
  - METABOLIC ACIDOSIS [None]
  - TACHYCARDIA [None]
